FAERS Safety Report 10871215 (Version 2)
Quarter: 2015Q3

REPORT INFORMATION
  Report Type: Spontaneous
  Country: US (occurrence: US)
  Receive Date: 20150226
  Receipt Date: 20150811
  Transmission Date: 20151125
  Serious: Yes (Hospitalization, Congenital Anomaly, Other)
  Sender: FDA-Public Use
  Company Number: US-APOTEX-2015AP006919

PATIENT
  Sex: Male
  Weight: 4.2 kg

DRUGS (1)
  1. PAXIL CR [Suspect]
     Active Substance: PAROXETINE HYDROCHLORIDE
     Indication: PRODUCT USED FOR UNKNOWN INDICATION
     Dosage: 12.5 MG, UNK
     Route: 064

REACTIONS (4)
  - Supraventricular tachycardia [Unknown]
  - Neonatal tachycardia [Unknown]
  - Cardiac murmur [Unknown]
  - Foetal exposure during pregnancy [Unknown]
